FAERS Safety Report 18146395 (Version 1)
Quarter: 2020Q3

REPORT INFORMATION
  Report Type: Report from Study
  Country: SE (occurrence: SE)
  Receive Date: 20200813
  Receipt Date: 20200813
  Transmission Date: 20201103
  Serious: Yes (Hospitalization)
  Sender: FDA-Public Use
  Company Number: SE-ACTELION-A-CH2020-206274

PATIENT
  Age: 32 Year
  Sex: Female
  Weight: 58 kg

DRUGS (36)
  1. UPTRAVI [Suspect]
     Active Substance: SELEXIPAG
     Dosage: 1200 MCG, QD
     Route: 048
     Dates: start: 20191015, end: 20191021
  2. REMODULIN [Concomitant]
     Active Substance: TREPROSTINIL
     Dosage: 20 NG/KG, QD
     Dates: start: 20200616, end: 20200624
  3. ORENITRAM [Concomitant]
     Active Substance: TREPROSTINIL
     Dosage: 30.7 MG, QD
     Route: 048
     Dates: start: 20191015, end: 20191021
  4. ORENITRAM [Concomitant]
     Active Substance: TREPROSTINIL
     Dosage: 15 MG, QD
     Route: 048
     Dates: start: 20191105, end: 20191111
  5. ADCIRCA [Concomitant]
     Active Substance: TADALAFIL
     Indication: PULMONARY ARTERIAL HYPERTENSION
     Dosage: 20 MG, QD
     Route: 048
     Dates: start: 20160513
  6. FUROSEMIDE. [Concomitant]
     Active Substance: FUROSEMIDE
     Dosage: UNK, PRN
     Route: 048
     Dates: start: 20150401
  7. SPIRONOLACTONE. [Concomitant]
     Active Substance: SPIRONOLACTONE
     Dosage: UNK
     Route: 048
     Dates: start: 20190610
  8. UPTRAVI [Suspect]
     Active Substance: SELEXIPAG
     Indication: PULMONARY ARTERIAL HYPERTENSION
     Dosage: 3200 MCG, QD
     Route: 048
     Dates: start: 20191231, end: 20200609
  9. UPTRAVI [Suspect]
     Active Substance: SELEXIPAG
     Dosage: 800 MCG, QD
     Route: 048
     Dates: start: 20191008, end: 20191014
  10. UPTRAVI [Suspect]
     Active Substance: SELEXIPAG
     Dosage: 2400 MCG, QD
     Route: 048
     Dates: start: 20200610, end: 20200611
  11. ORENITRAM [Concomitant]
     Active Substance: TREPROSTINIL
     Dosage: 4.5 MG, QD
     Route: 048
     Dates: start: 20191119, end: 20191124
  12. ZOLPIDEM [Concomitant]
     Active Substance: ZOLPIDEM TARTRATE
     Indication: INSOMNIA
     Dosage: UNK, PRN
     Route: 042
     Dates: start: 20191202
  13. POTASSIUM CHLORIDE. [Concomitant]
     Active Substance: POTASSIUM CHLORIDE
     Dosage: UNK, PRN
     Route: 048
     Dates: start: 2015
  14. UPTRAVI [Suspect]
     Active Substance: SELEXIPAG
     Dosage: 400 MCG, QD
     Route: 048
     Dates: start: 20191001, end: 20191007
  15. UPTRAVI [Suspect]
     Active Substance: SELEXIPAG
     Dosage: 2400 MCG, QD
     Route: 048
     Dates: start: 20191105, end: 20191113
  16. REMODULIN [Concomitant]
     Active Substance: TREPROSTINIL
     Dosage: 30 NG/KG, QD
     Dates: start: 20200625, end: 20200723
  17. REMODULIN [Concomitant]
     Active Substance: TREPROSTINIL
     Dosage: 35 NG/KG, QD
     Dates: start: 20200724
  18. ORENITRAM [Concomitant]
     Active Substance: TREPROSTINIL
     Indication: PULMONARY ARTERIAL HYPERTENSION
     Dosage: 42 MG, QD
     Route: 048
     Dates: start: 20181221, end: 20191007
  19. ORENITRAM [Concomitant]
     Active Substance: TREPROSTINIL
     Dosage: 36 MG, QD
     Route: 048
     Dates: start: 20191008, end: 20191014
  20. OPSUMIT [Suspect]
     Active Substance: MACITENTAN
     Indication: PULMONARY ARTERIAL HYPERTENSION
     Dosage: 10 MG, QD
     Route: 048
     Dates: start: 20150331
  21. UPTRAVI [Suspect]
     Active Substance: SELEXIPAG
     Dosage: 2800 MCG, QD
     Route: 048
     Dates: start: 20191114, end: 20191230
  22. UPTRAVI [Suspect]
     Active Substance: SELEXIPAG
     Dosage: 800 MCG, QD
     Route: 048
     Dates: start: 20200613, end: 20200614
  23. CALCIUM CARBONATE. [Concomitant]
     Active Substance: CALCIUM CARBONATE
     Dosage: UNK
     Route: 048
     Dates: start: 20191001
  24. REMODULIN [Concomitant]
     Active Substance: TREPROSTINIL
     Indication: PULMONARY ARTERIAL HYPERTENSION
     Dosage: 5 NG/KG, QD
     Dates: start: 20200610, end: 20200611
  25. UPTRAVI [Suspect]
     Active Substance: SELEXIPAG
     Dosage: 400 MCG, QD
     Route: 048
     Dates: start: 20200614, end: 20200624
  26. ORENITRAM [Concomitant]
     Active Substance: TREPROSTINIL
     Dosage: 9.7 MG, QD
     Route: 048
     Dates: start: 20191112, end: 20191118
  27. REMODULIN [Concomitant]
     Active Substance: TREPROSTINIL
     Dosage: 10 NG/KG, QD
     Dates: start: 20200612, end: 20200613
  28. REMODULIN [Concomitant]
     Active Substance: TREPROSTINIL
     Dosage: 15 NG/KG, QD
     Dates: start: 20200614, end: 20200615
  29. ORENITRAM [Concomitant]
     Active Substance: TREPROSTINIL
     Dosage: 20.2 MG, QD
     Route: 048
     Dates: start: 20191029, end: 20191104
  30. UPTRAVI [Suspect]
     Active Substance: SELEXIPAG
     Dosage: 1600 MCG, QD
     Route: 048
     Dates: start: 20191022, end: 20191028
  31. UPTRAVI [Suspect]
     Active Substance: SELEXIPAG
     Dosage: 2000 MCG, QD
     Route: 048
     Dates: start: 20191029, end: 20191104
  32. UPTRAVI [Suspect]
     Active Substance: SELEXIPAG
     Dosage: 1600 MCG, QD
     Route: 048
     Dates: start: 20200611, end: 20200612
  33. UPTRAVI [Suspect]
     Active Substance: SELEXIPAG
     Dosage: 1200 MCG, QD
     Route: 048
     Dates: start: 20200612, end: 20200613
  34. ORENITRAM [Concomitant]
     Active Substance: TREPROSTINIL
     Dosage: 24.5 MG, QD
     Route: 048
     Dates: start: 20191022, end: 20191028
  35. NAUSEA [Concomitant]
     Indication: PROPHYLAXIS
     Dosage: UNK, PRN
     Route: 048
     Dates: start: 20161221
  36. LOPERAMIDE [Concomitant]
     Active Substance: LOPERAMIDE
     Indication: PROPHYLAXIS
     Dosage: UNK, PRN
     Route: 048
     Dates: start: 201805

REACTIONS (3)
  - Condition aggravated [Not Recovered/Not Resolved]
  - Pulmonary arterial hypertension [Not Recovered/Not Resolved]
  - Disease progression [Not Recovered/Not Resolved]

NARRATIVE: CASE EVENT DATE: 20200401
